FAERS Safety Report 7622974 (Version 7)
Quarter: 2014Q1

REPORT INFORMATION
  Report Type: Spontaneous
  Country: US (occurrence: US)
  Receive Date: 20101011
  Receipt Date: 20140117
  Transmission Date: 20141002
  Serious: Yes (Hospitalization, Other)
  Sender: FDA-Public Use
  Company Number: US-BAYER-201035818NA

PATIENT
  Age: 27 Year
  Sex: Female
  Weight: 108.84 kg

DRUGS (10)
  1. YASMIN [Suspect]
     Indication: CONTRACEPTION
     Dates: start: 200407, end: 200612
  2. ASACOL [Concomitant]
     Indication: COLITIS ULCERATIVE
     Dosage: 400 MG, TID
     Route: 048
  3. ADVIL [IBUPROFEN] [Concomitant]
     Indication: HEADACHE
  4. ADVIL [IBUPROFEN] [Concomitant]
     Indication: PAIN
  5. ANTIBIOTICS [Concomitant]
     Indication: PRODUCT USED FOR UNKNOWN INDICATION
     Dosage: UNK UNK, PRN
     Dates: start: 2000
  6. COLAZAL [Concomitant]
     Indication: COLITIS ULCERATIVE
     Dosage: 750 MG, TID
     Route: 048
  7. LEXAPRO [Concomitant]
     Indication: ANXIETY
     Dosage: UNK
     Dates: start: 20100101
  8. PREVACID [Concomitant]
     Indication: ABDOMINAL PAIN UPPER
     Dosage: UNK
     Dates: start: 2005
  9. ROLAIDS [DIHYDROXYALUMINUM SODIUM CARBONATE] [Concomitant]
     Indication: ABDOMINAL PAIN UPPER
     Dosage: UNK
     Dates: start: 2004, end: 2005
  10. MAALOX ANTACID [Concomitant]
     Indication: ABDOMINAL PAIN UPPER
     Dosage: UNK
     Dates: start: 2004, end: 2005

REACTIONS (3)
  - Gallbladder disorder [Unknown]
  - Cholecystitis chronic [Unknown]
  - Cholelithiasis [None]
